FAERS Safety Report 7563220-3 (Version None)
Quarter: 2011Q2

REPORT INFORMATION
  Report Type: 
  Country: None (occurrence: None)
  Receive Date: 20110621
  Receipt Date: 20110621
  Transmission Date: 20111010
  Serious: No
  Sender: FDA-Public Use
  Company Number: None

PATIENT
  Sex: Female
  Weight: 46.7205 kg

DRUGS (1)
  1. TOPAMAX [Suspect]
     Indication: CONVULSION
     Dosage: 100 MG QD PO
     Route: 048
     Dates: start: 20110606, end: 20110620

REACTIONS (1)
  - PRODUCT SUBSTITUTION ISSUE [None]
